FAERS Safety Report 21400057 (Version 7)
Quarter: 2023Q1

REPORT INFORMATION
  Report Type: Report from Study
  Country: DE (occurrence: DE)
  Receive Date: 20221002
  Receipt Date: 20230324
  Transmission Date: 20230417
  Serious: Yes (Life-Threatening, Hospitalization)
  Sender: FDA-Public Use
  Company Number: DE-NOVARTISPH-NVSC2022DE179445

PATIENT
  Age: 46 Year
  Sex: Female

DRUGS (7)
  1. MIDOSTAURIN [Suspect]
     Active Substance: MIDOSTAURIN
     Indication: Acute myeloid leukaemia
     Dosage: CODE NOT BROKEN
     Route: 048
     Dates: start: 20220607
  2. INVESTIGATIONAL PRODUCT [Suspect]
     Active Substance: INVESTIGATIONAL PRODUCT
     Indication: Acute myeloid leukaemia
     Dosage: CODE NOT BROKEN
     Route: 048
     Dates: start: 20220607
  3. PLACEBO [Suspect]
     Active Substance: UNSPECIFIED INGREDIENT
     Indication: Acute myeloid leukaemia
     Dosage: CODE NOT BROKEN
     Route: 048
     Dates: start: 20220607
  4. GEMTUZUMAB OZOGAMICIN [Suspect]
     Active Substance: GEMTUZUMAB OZOGAMICIN
     Indication: Acute myeloid leukaemia
     Dosage: 4.5 MG
     Route: 042
     Dates: start: 20220531
  5. GEMTUZUMAB OZOGAMICIN [Suspect]
     Active Substance: GEMTUZUMAB OZOGAMICIN
     Dosage: UNK
     Route: 042
     Dates: start: 20220603
  6. CYTARABINE [Concomitant]
     Active Substance: CYTARABINE
     Indication: Acute myeloid leukaemia
     Dosage: 320 MG
     Route: 042
     Dates: start: 20220531, end: 20220606
  7. DAUNORUBICIN [Concomitant]
     Active Substance: DAUNORUBICIN
     Indication: Acute myeloid leukaemia
     Dosage: 96 MG
     Route: 042
     Dates: start: 20220531, end: 20220602

REACTIONS (3)
  - Sepsis [Recovered/Resolved]
  - Megacolon [Recovered/Resolved]
  - Subileus [Unknown]

NARRATIVE: CASE EVENT DATE: 20220624
